FAERS Safety Report 13377144 (Version 1)
Quarter: 2017Q1

REPORT INFORMATION
  Report Type: Spontaneous
  Country: US (occurrence: US)
  Receive Date: 20170328
  Receipt Date: 20170328
  Transmission Date: 20170429
  Serious: Yes (Disabling, Other)
  Sender: FDA-Public Use
  Company Number: None

PATIENT
  Age: 10 Year
  Sex: Female
  Weight: 75 kg

DRUGS (4)
  1. MONTELUKAST [Suspect]
     Active Substance: MONTELUKAST SODIUM
     Indication: PNEUMONIA
     Dosage: ?          QUANTITY:1 TABLET(S);?
     Route: 048
     Dates: start: 20090202, end: 20170118
  2. MONTELUKAST [Suspect]
     Active Substance: MONTELUKAST SODIUM
     Indication: ASTHMA EXERCISE INDUCED
     Dosage: ?          QUANTITY:1 TABLET(S);?
     Route: 048
     Dates: start: 20090202, end: 20170118
  3. ZYRTEC [Concomitant]
     Active Substance: CETIRIZINE HYDROCHLORIDE
  4. MONTELUKAST [Suspect]
     Active Substance: MONTELUKAST SODIUM
     Indication: ASTHMA
     Dosage: ?          QUANTITY:1 TABLET(S);?
     Route: 048
     Dates: start: 20090202, end: 20170118

REACTIONS (13)
  - Hallucination, auditory [None]
  - Sleep terror [None]
  - Psychotic disorder [None]
  - Emotional disorder [None]
  - Suicidal ideation [None]
  - Nightmare [None]
  - Abnormal behaviour [None]
  - Aggression [None]
  - Screaming [None]
  - Therapy cessation [None]
  - Depression [None]
  - Anger [None]
  - Thinking abnormal [None]

NARRATIVE: CASE EVENT DATE: 20170216
